FAERS Safety Report 16055945 (Version 1)
Quarter: 2019Q1

REPORT INFORMATION
  Report Type: Spontaneous
  Country: US (occurrence: US)
  Receive Date: 20190208
  Receipt Date: 20190208
  Transmission Date: 20190418
  Serious: No
  Sender: FDA-Public Use
  Company Number: None

PATIENT
  Age: 54 Year
  Sex: Male
  Weight: 65.77 kg

DRUGS (4)
  1. METHYLPREDNISOLONE 4 MG TAB [Concomitant]
  2. COLGATE ENAMEL HEALTH MOUTHWASH [Suspect]
     Active Substance: SODIUM FLUORIDE
     Indication: DENTAL DISORDER PROPHYLAXIS
     Dosage: ?          QUANTITY:2 DF DOSAGE FORM;?
     Route: 048
     Dates: start: 20180925, end: 20180927
  3. METOPROLOL 25 MG [Concomitant]
     Active Substance: METOPROLOL
  4. TYLENOL [Concomitant]
     Active Substance: ACETAMINOPHEN

REACTIONS (8)
  - Oral discomfort [None]
  - Weight decreased [None]
  - Dysgeusia [None]
  - Abdominal pain upper [None]
  - Nausea [None]
  - Vomiting [None]
  - Tongue discomfort [None]
  - Dyspepsia [None]

NARRATIVE: CASE EVENT DATE: 20180925
